FAERS Safety Report 4630477-8 (Version None)
Quarter: 2005Q2

REPORT INFORMATION
  Report Type: 
  Country: None (occurrence: None)
  Receive Date: 20050408
  Receipt Date: 20050330
  Transmission Date: 20051028
  Serious: Yes (Hospitalization)
  Sender: FDA-Public Use
  Company Number: FR-JNJFOC-20050307357

PATIENT
  Age: 74 Year
  Sex: Female
  Weight: 48 kg

DRUGS (8)
  1. DURAGESIC-100 [Suspect]
     Indication: CANCER PAIN
     Route: 062
  2. HALDOL [Suspect]
     Indication: DRUG USE FOR UNKNOWN INDICATION
     Dosage: 6 GTE.
     Route: 065
  3. DI-ANTALVIC [Suspect]
     Route: 049
  4. DI-ANTALVIC [Suspect]
     Indication: DRUG USE FOR UNKNOWN INDICATION
     Route: 049
  5. DEBRIDAT [Suspect]
     Indication: DRUG USE FOR UNKNOWN INDICATION
     Route: 049
  6. MODANE [Concomitant]
  7. MODANE [Concomitant]
  8. LANZOR [Concomitant]

REACTIONS (2)
  - CONSTIPATION [None]
  - IMPAIRED GASTRIC EMPTYING [None]
